FAERS Safety Report 17161351 (Version 1)
Quarter: 2019Q4

REPORT INFORMATION
  Report Type: Spontaneous
  Country: US (occurrence: US)
  Receive Date: 20191216
  Receipt Date: 20191216
  Transmission Date: 20200122
  Serious: No
  Sender: FDA-Public Use
  Company Number: NVSC2019US005451

PATIENT
  Age: 84 Year
  Sex: Female

DRUGS (1)
  1. VOLTAREN EMULGEL [Suspect]
     Active Substance: DICLOFENAC DIETHYLAMINE
     Indication: PRURITUS
     Route: 065

REACTIONS (4)
  - Product use in unapproved indication [Unknown]
  - Product administered at inappropriate site [Unknown]
  - Prescription drug used without a prescription [Unknown]
  - Drug effective for unapproved indication [Unknown]
